FAERS Safety Report 7544932-4 (Version None)
Quarter: 2011Q2

REPORT INFORMATION
  Report Type: 
  Country: None (occurrence: None)
  Receive Date: 20110614
  Receipt Date: 20110607
  Transmission Date: 20111010
  Serious: Yes (Hospitalization, Other)
  Sender: FDA-Public Use
  Company Number: US-BAYER-2011-049583

PATIENT
  Sex: Female

DRUGS (2)
  1. YASMIN [Suspect]
     Dosage: UNK
     Dates: start: 20070101, end: 20090901
  2. YAZ [Suspect]
     Dosage: UNK
     Dates: start: 20070101, end: 20090901

REACTIONS (16)
  - CHOLECYSTITIS [None]
  - DYSPEPSIA [None]
  - ABDOMINAL PAIN [None]
  - PAIN [None]
  - AMENORRHOEA [None]
  - ANXIETY [None]
  - PYREXIA [None]
  - VOMITING [None]
  - CHEST PAIN [None]
  - TREMOR [None]
  - NAUSEA [None]
  - GALLBLADDER DISORDER [None]
  - CHILLS [None]
  - INJURY [None]
  - GENERAL PHYSICAL HEALTH DETERIORATION [None]
  - EMOTIONAL DISTRESS [None]
